FAERS Safety Report 19907036 (Version 1)
Quarter: 2021Q4

REPORT INFORMATION
  Report Type: Spontaneous
  Country: US (occurrence: US)
  Receive Date: 20211001
  Receipt Date: 20211001
  Transmission Date: 20220303
  Serious: Yes (Hospitalization)
  Sender: FDA-Public Use
  Company Number: None

PATIENT
  Age: 50 Year
  Sex: Male
  Weight: 83.7 kg

DRUGS (2)
  1. CANNABIDIOL\.DELTA.8-TETRAHYDROCANNABINOL\HERBALS [Suspect]
     Active Substance: CANNABIDIOL\.DELTA.8-TETRAHYDROCANNABINOL\HERBALS
     Indication: Arthritis
     Dosage: ?          QUANTITY:30 DROP(S);
     Dates: start: 20210929, end: 20210929
  2. CLARITIN-D NOS [Concomitant]
     Active Substance: LORATADINE\PSEUDOEPHEDRINE SULFATE

REACTIONS (8)
  - Heart rate increased [None]
  - Disturbance in attention [None]
  - Disorientation [None]
  - Paraesthesia oral [None]
  - Oropharyngeal discomfort [None]
  - Dyspnoea [None]
  - Hypersensitivity [None]
  - Product contamination [None]

NARRATIVE: CASE EVENT DATE: 20210929
